FAERS Safety Report 12753424 (Version 1)
Quarter: 2016Q3

REPORT INFORMATION
  Report Type: Spontaneous
  Country: IN (occurrence: IN)
  Receive Date: 20160916
  Receipt Date: 20160916
  Transmission Date: 20161109
  Serious: No
  Sender: FDA-Public Use
  Company Number: IN-LUPIN PHARMACEUTICALS INC.-E2B_00005583

PATIENT
  Age: 65 Year
  Sex: Male

DRUGS (1)
  1. CETIL 500 (5X10T) [Suspect]
     Active Substance: CEFUROXIME AXETIL
     Indication: INFECTION PROPHYLAXIS
     Route: 048
     Dates: start: 20160526, end: 20160601

REACTIONS (7)
  - Dysgeusia [Not Recovered/Not Resolved]
  - Gastritis [Not Recovered/Not Resolved]
  - Faeces hard [Not Recovered/Not Resolved]
  - Urine odour abnormal [Not Recovered/Not Resolved]
  - Insomnia [Not Recovered/Not Resolved]
  - Urine analysis abnormal [None]
  - Vomiting [Not Recovered/Not Resolved]

NARRATIVE: CASE EVENT DATE: 20160526
